FAERS Safety Report 24233776 (Version 1)
Quarter: 2024Q3

REPORT INFORMATION
  Report Type: Spontaneous
  Country: US (occurrence: None)
  Receive Date: 20240820
  Receipt Date: 20240820
  Transmission Date: 20241017
  Serious: Yes (Disabling, Other)
  Sender: Public
  Company Number: None

PATIENT
  Age: 33 Year
  Sex: Female
  Weight: 61.23 kg

DRUGS (7)
  1. SUNOSI [Suspect]
     Active Substance: SOLRIAMFETOL
  2. PROTONIX [Concomitant]
     Active Substance: PANTOPRAZOLE SODIUM
  3. OCP [Concomitant]
  4. NORTRIPTYLINE [Concomitant]
     Active Substance: NORTRIPTYLINE
  5. MAXALT [Concomitant]
     Active Substance: RIZATRIPTAN BENZOATE
  6. CALCIUM [Concomitant]
     Active Substance: CALCIUM
  7. MAGNESIUM [Concomitant]
     Active Substance: MAGNESIUM

REACTIONS (10)
  - Headache [None]
  - Fatigue [None]
  - Brain fog [None]
  - Migraine [None]
  - Arthralgia [None]
  - Gastrooesophageal reflux disease [None]
  - Irritable bowel syndrome [None]
  - Tachycardia [None]
  - Hypertension [None]
  - Palpitations [None]

NARRATIVE: CASE EVENT DATE: 20150602
